FAERS Safety Report 9913335 (Version 1)
Quarter: 2014Q1

REPORT INFORMATION
  Report Type: Spontaneous
  Country: US (occurrence: None)
  Receive Date: 20140214
  Receipt Date: 20140214
  Transmission Date: 20141002
  Serious: Yes (Hospitalization, Other)
  Sender: FDA-Public Use
  Company Number: AXC-2014-000106

PATIENT
  Age: 74 Year
  Sex: Male

DRUGS (11)
  1. MESALAMINE [Suspect]
     Indication: CROHN^S DISEASE
  2. ASPIRIN [Concomitant]
  3. BUDESONIDE [Concomitant]
  4. DOCUSATE [Concomitant]
  5. OMEPRAZOLE [Concomitant]
  6. NIACIN [Concomitant]
  7. METOPROLOL [Concomitant]
  8. LISINOPRIL [Concomitant]
  9. ISOSORBIDE MONONITRATE [Concomitant]
  10. GABAPENTIN [Concomitant]
  11. ROSUVASTATIN [Concomitant]

REACTIONS (9)
  - Agranulocytosis [None]
  - Febrile neutropenia [None]
  - Sepsis [None]
  - Abdominal distension [None]
  - Malaise [None]
  - Confusional state [None]
  - Abdominal tenderness [None]
  - Pulmonary oedema [None]
  - Wheezing [None]
